FAERS Safety Report 15425119 (Version 1)
Quarter: 2018Q3

REPORT INFORMATION
  Report Type: Spontaneous
  Country: US (occurrence: US)
  Receive Date: 20180917
  Receipt Date: 20180917
  Transmission Date: 20181010
  Serious: No
  Sender: FDA-Public Use
  Company Number: None

PATIENT
  Age: 57 Year
  Sex: Male

DRUGS (1)
  1. TROGARZO [Suspect]
     Active Substance: IBALIZUMAB-UIYK
     Indication: HIV INFECTION
     Dosage: ?          OTHER FREQUENCY:BOLUS;?
     Route: 041
     Dates: start: 20180821

REACTIONS (7)
  - Fall [None]
  - Scab [None]
  - Muscular weakness [None]
  - Balance disorder [None]
  - Dysarthria [None]
  - Facial paralysis [None]
  - Dysphagia [None]
